FAERS Safety Report 6937534-1 (Version None)
Quarter: 2010Q3

REPORT INFORMATION
  Report Type: 
  Country: None (occurrence: None)
  Receive Date: 20100823
  Receipt Date: 20100823
  Transmission Date: 20110219
  Serious: Yes (Other)
  Sender: FDA-Public Use
  Company Number: None

PATIENT
  Age: 38 Year
  Sex: Female
  Weight: 86.1834 kg

DRUGS (1)
  1. METFORMIN XR 500 MG TABLETS TEVA [Suspect]
     Indication: POLYCYSTIC OVARIES
     Dosage: 1500 MG ONCE DAILY PO
     Route: 048
     Dates: start: 20080221, end: 20080227

REACTIONS (7)
  - ABDOMINAL DISTENSION [None]
  - ABDOMINAL PAIN [None]
  - ACTIVITIES OF DAILY LIVING IMPAIRED [None]
  - DIARRHOEA [None]
  - GASTROINTESTINAL DISORDER [None]
  - NAUSEA [None]
  - PRODUCT SUBSTITUTION ISSUE [None]
